FAERS Safety Report 4809097-8 (Version None)
Quarter: 2005Q4

REPORT INFORMATION
  Report Type: 
  Country: None (occurrence: None)
  Receive Date: 20051021
  Receipt Date: 20051021
  Transmission Date: 20060501
  Serious: Yes (Other)
  Sender: FDA-Public Use
  Company Number: None

PATIENT
  Age: 32 Year
  Sex: Female
  Weight: 90.7194 kg

DRUGS (3)
  1. ABILIFY [Suspect]
     Indication: BIPOLAR DISORDER
     Dosage: 1   QHS   PO
     Route: 048
     Dates: start: 20050506, end: 20051020
  2. WELLBUTRIN XL [Concomitant]
  3. LEXAPRO [Concomitant]

REACTIONS (1)
  - DYSKINESIA [None]
